FAERS Safety Report 16597006 (Version 2)
Quarter: 2020Q1

REPORT INFORMATION
  Report Type: Spontaneous
  Country: US (occurrence: US)
  Receive Date: 20190719
  Receipt Date: 20200302
  Transmission Date: 20200409
  Serious: Yes (Other)
  Sender: FDA-Public Use
  Company Number: US-GILEAD-2019-0418456

PATIENT
  Sex: Male

DRUGS (1)
  1. STRIBILD [Suspect]
     Active Substance: COBICISTAT\ELVITEGRAVIR\EMTRICITABINE\TENOFOVIR DISOPROXIL FUMARATE
     Indication: HIV INFECTION
     Dosage: UNK
     Route: 048
     Dates: start: 2015, end: 2018

REACTIONS (19)
  - Renal failure [Unknown]
  - Exostosis [Unknown]
  - Intervertebral disc protrusion [Unknown]
  - Spinal osteoarthritis [Unknown]
  - Bone density decreased [Unknown]
  - Pain [Not Recovered/Not Resolved]
  - Blood creatinine increased [Unknown]
  - Renal disorder [Unknown]
  - Anxiety [Not Recovered/Not Resolved]
  - Arthritis [Unknown]
  - Vitamin D deficiency [Unknown]
  - Anhedonia [Not Recovered/Not Resolved]
  - Osteonecrosis [Unknown]
  - Intervertebral disc space narrowing [Unknown]
  - Lumbar radiculopathy [Unknown]
  - Emotional distress [Not Recovered/Not Resolved]
  - Bone loss [Unknown]
  - Economic problem [Not Recovered/Not Resolved]
  - Hip arthroplasty [Unknown]
